FAERS Safety Report 9759313 (Version 1)
Quarter: 2013Q4

REPORT INFORMATION
  Report Type: Spontaneous
  Country: US (occurrence: None)
  Receive Date: 20131216
  Receipt Date: 20131216
  Transmission Date: 20140711
  Serious: Yes (Life-Threatening, Hospitalization, Disabling, Other)
  Sender: FDA-Public Use
  Company Number: 163-21880-12041325

PATIENT
  Age: 78 Year
  Sex: Male
  Weight: 59 kg

DRUGS (2)
  1. REVLIMID [Suspect]
     Dosage: 5MG, 21 IN 28 D, PO? ?
  2. RITUXAN [Suspect]
     Dosage: 0.5 UG, 1 IN 1 D, PO

REACTIONS (3)
  - Thrombocytopenia [None]
  - Decreased appetite [None]
  - Chronic lymphocytic leukaemia [None]
